FAERS Safety Report 5427534-5 (Version None)
Quarter: 2007Q3

REPORT INFORMATION
  Report Type: 
  Country: None (occurrence: None)
  Receive Date: 20070828
  Receipt Date: 20070817
  Transmission Date: 20080115
  Serious: Yes (Life-Threatening)
  Sender: FDA-Public Use
  Company Number: JP-SANOFI-SYNTHELABO-A01200709457

PATIENT
  Age: 50 Year
  Sex: Male

DRUGS (3)
  1. 5-FU [Concomitant]
     Dosage: DAYS 1 AND 2 UNK
     Route: 041
     Dates: start: 20070531, end: 20070727
  2. ISOVORIN [Suspect]
     Dosage: UNK
     Route: 041
     Dates: start: 20070809, end: 20070809
  3. ELPLAT [Suspect]
     Dosage: UNK
     Route: 041
     Dates: start: 20070809, end: 20070809

REACTIONS (1)
  - RESPIRATORY ARREST [None]
